FAERS Safety Report 15486594 (Version 1)
Quarter: 2018Q4

REPORT INFORMATION
  Report Type: Spontaneous
  Country: US (occurrence: US)
  Receive Date: 20181011
  Receipt Date: 20181011
  Transmission Date: 20190205
  Serious: No
  Sender: FDA-Public Use
  Company Number: US-ASTRAZENECA-2018SF18599

PATIENT
  Sex: Female

DRUGS (1)
  1. PULMICORT FLEXHALER [Suspect]
     Active Substance: BUDESONIDE
     Dosage: ONCE OR TWICE A DAY BUT THE HCP PRESCRIBED THE MEDICATION TWICE A DAY
     Route: 055
     Dates: start: 201805

REACTIONS (4)
  - Wheezing [Unknown]
  - Intentional product misuse [Unknown]
  - Device issue [Unknown]
  - Product dose omission [Unknown]
